FAERS Safety Report 4331144-0 (Version None)
Quarter: 2004Q2

REPORT INFORMATION
  Report Type: 
  Country: None (occurrence: None)
  Receive Date: 20040405
  Receipt Date: 20040322
  Transmission Date: 20050107
  Serious: Yes (Other)
  Sender: FDA-Public Use
  Company Number: PHBS2004US03932

PATIENT
  Age: 74 Year
  Sex: Female

DRUGS (3)
  1. HYDRALAZINE HCL [Suspect]
  2. FUROSEMIDE [Suspect]
  3. FERROUS SULFATE TAB [Suspect]
     Dosage: UNK, TID

REACTIONS (1)
  - GASTROINTESTINAL TRACT MUCOSAL PIGMENTATION [None]
